FAERS Safety Report 5951666-6 (Version None)
Quarter: 2008Q4

REPORT INFORMATION
  Report Type: 
  Country: None (occurrence: None)
  Receive Date: 20081113
  Receipt Date: 20081107
  Transmission Date: 20090506
  Serious: Yes (Hospitalization, Other)
  Sender: FDA-Public Use
  Company Number: IT-GENENTECH-265643

PATIENT
  Sex: Male

DRUGS (5)
  1. RAPTIVA [Suspect]
     Indication: PSORIASIS
     Dosage: 1 MG/KG, 1/WEEK
     Route: 058
     Dates: start: 20061027, end: 20070919
  2. ENBREL [Suspect]
     Indication: PSORIASIS
     Dosage: 100 MG, 1/WEEK
     Route: 058
     Dates: start: 20071127, end: 20080205
  3. ENBREL [Suspect]
     Dosage: 50 MG, 1/WEEK
     Route: 058
     Dates: start: 20080205, end: 20080318
  4. NEOTIGASON [Concomitant]
     Indication: PSORIASIS
     Dosage: 20 MG, UNK
     Route: 048
     Dates: start: 20061221, end: 20080716
  5. NEOTIGASON [Concomitant]
     Dosage: 30 MG, QD
     Dates: start: 20080101

REACTIONS (3)
  - HEPATIC LESION [None]
  - METASTASES TO LYMPH NODES [None]
  - SQUAMOUS CELL CARCINOMA [None]
